FAERS Safety Report 13130712 (Version 2)
Quarter: 2017Q2

REPORT INFORMATION
  Report Type: Spontaneous
  Country: US (occurrence: US)
  Receive Date: 20170119
  Receipt Date: 20170524
  Transmission Date: 20170830
  Serious: Yes (Hospitalization)
  Sender: FDA-Public Use
  Company Number: US-PFIZER INC-2017020532

PATIENT
  Age: 71 Year
  Sex: Male

DRUGS (1)
  1. XELJANZ [Suspect]
     Active Substance: TOFACITINIB CITRATE
     Dosage: 5 MG, UNK

REACTIONS (14)
  - Swelling [Unknown]
  - Arthralgia [Unknown]
  - Grip strength decreased [Unknown]
  - Chest pain [Unknown]
  - Pain in extremity [Unknown]
  - Tenderness [Unknown]
  - Feeling hot [Unknown]
  - Photodermatosis [Unknown]
  - Erythema [Unknown]
  - Arthropathy [Unknown]
  - Gait disturbance [Unknown]
  - Sleep disorder [Unknown]
  - Synovitis [Unknown]
  - Ankle deformity [Not Recovered/Not Resolved]

NARRATIVE: CASE EVENT DATE: 20170112
